FAERS Safety Report 17561861 (Version 2)
Quarter: 2020Q1

REPORT INFORMATION
  Report Type: Report from Study
  Country: IT (occurrence: IT)
  Receive Date: 20200319
  Receipt Date: 20200325
  Transmission Date: 20200409
  Serious: Yes (Other)
  Sender: FDA-Public Use
  Company Number: IT-TEVA-2020-IT-1202999

PATIENT
  Age: 77 Year
  Sex: Female

DRUGS (7)
  1. METRONIDAZOLE. [Suspect]
     Active Substance: METRONIDAZOLE
     Indication: INFECTION
     Dosage: 1 DOSAGE FORM
     Route: 048
     Dates: start: 20191001, end: 20191001
  2. PREGABALIN. [Concomitant]
     Active Substance: PREGABALIN
     Indication: EPILEPSY
     Route: 048
  3. DOMPERIDONE [Concomitant]
     Active Substance: DOMPERIDONE
     Indication: VOMITING
     Route: 048
  4. AMOXICILLIN. [Suspect]
     Active Substance: AMOXICILLIN
     Indication: INFECTION
     Dosage: 1 DOSAGE FORM
     Route: 048
     Dates: start: 20191001, end: 20191001
  5. ESOMEPRAZOLE SODIUM. [Concomitant]
     Active Substance: ESOMEPRAZOLE SODIUM
     Dosage: 20MG
     Route: 048
  6. CANDESARTAN CILEXETIL. [Concomitant]
     Active Substance: CANDESARTAN CILEXETIL
     Indication: HYPERTENSION
     Route: 048
  7. CLARITHROMYCIN. [Suspect]
     Active Substance: CLARITHROMYCIN
     Indication: INFECTION
     Dosage: 1 DOSAGE FORM
     Route: 048
     Dates: start: 20191001, end: 20191001

REACTIONS (4)
  - Tongue oedema [Recovering/Resolving]
  - Angioedema [Recovering/Resolving]
  - Paraesthesia [Recovering/Resolving]
  - Oral mucosal exfoliation [Recovering/Resolving]

NARRATIVE: CASE EVENT DATE: 20191001
